FAERS Safety Report 15208364 (Version 2)
Quarter: 2018Q3

REPORT INFORMATION
  Report Type: Spontaneous
  Country: AR (occurrence: AR)
  Receive Date: 20180727
  Receipt Date: 20180823
  Transmission Date: 20181010
  Serious: Yes (Hospitalization)
  Sender: FDA-Public Use
  Company Number: AR-ACTELION-A-CH2018-175845

PATIENT
  Age: 27 Year
  Sex: Female
  Weight: 54 kg

DRUGS (3)
  1. OPSUMIT [Suspect]
     Active Substance: MACITENTAN
     Indication: PULMONARY ARTERIAL HYPERTENSION
     Dosage: 10 MG, QD
     Route: 048
  2. VENTAVIS [Suspect]
     Active Substance: ILOPROST
     Indication: PULMONARY ARTERIAL HYPERTENSION
     Dosage: UNK , UNK
     Route: 055
     Dates: start: 20180512, end: 20180703
  3. SILDENAFIL. [Concomitant]
     Active Substance: SILDENAFIL
     Indication: PULMONARY HYPERTENSION
     Route: 065

REACTIONS (5)
  - Vomiting [Unknown]
  - Syncope [Unknown]
  - Asthenia [Unknown]
  - Pulmonary hypertension [Recovered/Resolved with Sequelae]
  - Cardiac failure [Unknown]

NARRATIVE: CASE EVENT DATE: 20180710
